FAERS Safety Report 17855346 (Version 1)
Quarter: 2020Q2

REPORT INFORMATION
  Report Type: Spontaneous
  Country: US (occurrence: US)
  Receive Date: 20200603
  Receipt Date: 20200603
  Transmission Date: 20200714
  Serious: Yes (Death, Other)
  Sender: FDA-Public Use
  Company Number: US-SA-2020SA141181

PATIENT

DRUGS (1)
  1. GOLD BOND MEDICATED CRACKED SKIN FILL AND PROTECT [Suspect]
     Active Substance: PETROLATUM

REACTIONS (5)
  - Pain [Unknown]
  - Pulmonary embolism [Fatal]
  - Emotional distress [Unknown]
  - Mesothelioma [Fatal]
  - Respiratory failure [Fatal]

NARRATIVE: CASE EVENT DATE: 20191023
